FAERS Safety Report 6253495-5 (Version None)
Quarter: 2009Q3

REPORT INFORMATION
  Report Type: 
  Country: None (occurrence: None)
  Receive Date: 20090701
  Receipt Date: 20090622
  Transmission Date: 20100115
  Serious: Yes (Other)
  Sender: FDA-Public Use
  Company Number: SE-GENENTECH-284549

PATIENT
  Age: 68 Year
  Sex: Male

DRUGS (1)
  1. MABTHERA [Suspect]
     Indication: NEOPLASM
     Dosage: 30 MG, UNK
     Route: 042
     Dates: start: 20090520, end: 20090520

REACTIONS (1)
  - ANAPHYLACTIC REACTION [None]
